FAERS Safety Report 9493385 (Version 1)
Quarter: 2013Q3

REPORT INFORMATION
  Report Type: Spontaneous
  Country: US (occurrence: US)
  Receive Date: 20130902
  Receipt Date: 20130902
  Transmission Date: 20140515
  Serious: Yes (Other)
  Sender: FDA-Public Use
  Company Number: US-PFIZER INC-2013251711

PATIENT
  Age: 32 Year
  Sex: 0

DRUGS (1)
  1. IBUPROFEN [Suspect]
     Route: 065

REACTIONS (1)
  - Haemorrhage [Unknown]
